FAERS Safety Report 21680548 (Version 2)
Quarter: 2022Q4

REPORT INFORMATION
  Report Type: Spontaneous
  Country: US (occurrence: US)
  Receive Date: 20221205
  Receipt Date: 20221212
  Transmission Date: 20230112
  Serious: Yes (Other)
  Sender: FDA-Public Use
  Company Number: US-BRISTOL-MYERS SQUIBB COMPANY-2022-146238

PATIENT
  Age: 75 Year
  Sex: Male
  Weight: 92.079 kg

DRUGS (1)
  1. POMALYST [Suspect]
     Active Substance: POMALIDOMIDE
     Indication: Plasma cell myeloma
     Dosage: FREQUENCY: QD ON DAYS 1-21
     Route: 048
     Dates: start: 20221017

REACTIONS (1)
  - Plasma cell myeloma [Unknown]
